FAERS Safety Report 6077207-3 (Version None)
Quarter: 2009Q1

REPORT INFORMATION
  Report Type: 
  Country: None (occurrence: None)
  Receive Date: 20090213
  Receipt Date: 20090210
  Transmission Date: 20090719
  Serious: Yes (Other)
  Sender: FDA-Public Use
  Company Number: US-BRISTOL-MYERS SQUIBB COMPANY-14499826

PATIENT
  Age: 4 Decade
  Sex: Female

DRUGS (2)
  1. EMSAM [Suspect]
  2. ABILIFY [Suspect]
     Indication: MAJOR DEPRESSION

REACTIONS (1)
  - SEROTONIN SYNDROME [None]
